FAERS Safety Report 8073860-3 (Version None)
Quarter: 2011Q4

REPORT INFORMATION
  Report Type: 
  Country: None (occurrence: None)
  Receive Date: 20111221
  Receipt Date: 20110803
  Transmission Date: 20120403
  Serious: Yes (Other)
  Sender: FDA-Public Use
  Company Number: PHHY2011US18371

PATIENT
  Age: 61 Year
  Sex: Male
  Weight: 54.1 kg

DRUGS (10)
  1. SENNA (SENNA, SENNA ALEXANDRINA) [Concomitant]
  2. DILAUDID [Concomitant]
  3. EXJADE [Suspect]
     Indication: IRON OVERLOAD
     Dosage: 1000 MG, DAILY, ORAL, 1000 MG, DAILY, ORAL, 500 MG, BID, ORAL
     Route: 048
     Dates: start: 20110208
  4. AZACITIDINE [Concomitant]
  5. DECADRON [Concomitant]
  6. MIRALAX [Concomitant]
  7. CALCIUM CARBONATE [Concomitant]
  8. PRILOSEC [Concomitant]
  9. COLECALCIFEROL (COLECALCIFEROL) [Concomitant]
  10. ZOFRAN [Concomitant]

REACTIONS (15)
  - CHILLS [None]
  - URINE ODOUR ABNORMAL [None]
  - PLATELET COUNT DECREASED [None]
  - MUCOSAL DRYNESS [None]
  - PYREXIA [None]
  - NAUSEA [None]
  - PAIN IN EXTREMITY [None]
  - SERUM FERRITIN INCREASED [None]
  - ABDOMINAL PAIN [None]
  - MYALGIA [None]
  - ABDOMINAL PAIN UPPER [None]
  - FATIGUE [None]
  - THROMBOCYTOPENIA [None]
  - ASPARTATE AMINOTRANSFERASE INCREASED [None]
  - PALLOR [None]
